FAERS Safety Report 8426921-0 (Version None)
Quarter: 2012Q2

REPORT INFORMATION
  Report Type: 
  Country: None (occurrence: None)
  Receive Date: 20120531
  Receipt Date: 20120522
  Transmission Date: 20120825
  Serious: Yes (Other)
  Sender: FDA-Public Use
  Company Number: 2011SP059039

PATIENT
  Sex: Female

DRUGS (3)
  1. RIBAVIRIN [Suspect]
     Indication: HEPATITIS C
     Dates: start: 20111212, end: 20120322
  2. PEG-INTRON [Suspect]
     Indication: HEPATITIS C
     Dates: start: 20111212, end: 20120322
  3. VICTRELIS [Suspect]
     Indication: HEPATITIS C
     Dates: start: 20120109, end: 20120322

REACTIONS (16)
  - MANIA [None]
  - BIPOLAR DISORDER [None]
  - CRYING [None]
  - CONFUSIONAL STATE [None]
  - DISORIENTATION [None]
  - HYPOTONIA [None]
  - ANAEMIA [None]
  - HAIR COLOUR CHANGES [None]
  - PEAU D'ORANGE [None]
  - FEAR [None]
  - VIOLENCE-RELATED SYMPTOM [None]
  - DEPRESSION [None]
  - SKIN WRINKLING [None]
  - ALOPECIA [None]
  - INTENTIONAL SELF-INJURY [None]
  - MENTAL DISORDER [None]
